FAERS Safety Report 4761502-1 (Version None)
Quarter: 2005Q3

REPORT INFORMATION
  Report Type: 
  Country: None (occurrence: None)
  Receive Date: 20050906
  Receipt Date: 20050824
  Transmission Date: 20060218
  Serious: Yes (Hospitalization)
  Sender: FDA-Public Use
  Company Number: FI-GLAXOSMITHKLINE-B0391600A

PATIENT
  Age: 63 Year
  Sex: Female
  Weight: 77 kg

DRUGS (6)
  1. ROSIGLITAZONE [Suspect]
     Dosage: 4MG PER DAY
     Route: 048
     Dates: start: 20020501, end: 20040823
  2. AMARYL [Concomitant]
     Dosage: 4.5MG PER DAY
     Route: 048
     Dates: start: 20000301
  3. CIPRAMIL [Concomitant]
     Indication: DEPRESSION
     Dosage: 20MG PER DAY
     Route: 048
     Dates: start: 20021030
  4. BECLONASAL [Concomitant]
     Dosage: 100MG PER DAY
     Route: 045
     Dates: start: 19950501
  5. CORTIVENT [Concomitant]
     Dosage: 200MG PER DAY
     Route: 055
     Dates: start: 19950501
  6. DIFORMIN [Concomitant]
     Dosage: 2000MG PER DAY
     Route: 048
     Dates: start: 20040916

REACTIONS (1)
  - CIRRHOSIS ALCOHOLIC [None]
